FAERS Safety Report 20755471 (Version 4)
Quarter: 2022Q3

REPORT INFORMATION
  Report Type: Report from Study
  Country: US (occurrence: US)
  Receive Date: 20220427
  Receipt Date: 20220624
  Transmission Date: 20221027
  Serious: Yes (Other)
  Sender: FDA-Public Use
  Company Number: NVSC2022US096726

PATIENT
  Sex: Female

DRUGS (1)
  1. ENTRESTO [Suspect]
     Active Substance: SACUBITRIL\VALSARTAN
     Indication: Product used for unknown indication
     Dosage: UNK, BID
     Route: 048
     Dates: start: 20220320

REACTIONS (5)
  - Atrial fibrillation [Unknown]
  - Blood sodium decreased [Unknown]
  - Rib fracture [Unknown]
  - Fall [Unknown]
  - Muscular weakness [Unknown]
